FAERS Safety Report 9725752 (Version 1)
Quarter: 2013Q4

REPORT INFORMATION
  Report Type: Spontaneous
  Country: DE (occurrence: DE)
  Receive Date: 20131203
  Receipt Date: 20131203
  Transmission Date: 20140711
  Serious: Yes (Other)
  Sender: FDA-Public Use
  Company Number: DE-JNJFOC-20131117357

PATIENT
  Sex: Female
  Weight: 63 kg

DRUGS (2)
  1. XARELTO [Suspect]
     Indication: CEREBROVASCULAR ACCIDENT PROPHYLAXIS
     Route: 048
     Dates: start: 20130919, end: 20130930
  2. XARELTO [Suspect]
     Indication: ATRIAL FIBRILLATION
     Route: 048
     Dates: start: 20130919, end: 20130930

REACTIONS (5)
  - Cardiac failure [Recovering/Resolving]
  - N-terminal prohormone brain natriuretic peptide increased [Recovering/Resolving]
  - Blood creatinine increased [Recovering/Resolving]
  - Oedema peripheral [Recovering/Resolving]
  - Dyspnoea [Recovering/Resolving]
